FAERS Safety Report 7302750-6 (Version None)
Quarter: 2011Q1

REPORT INFORMATION
  Report Type: 
  Country: None (occurrence: None)
  Receive Date: 20110218
  Receipt Date: 20110214
  Transmission Date: 20110831
  Serious: Yes (Hospitalization, Disabling)
  Sender: FDA-Public Use
  Company Number: US-US-EMD SERONO, INC.-7016239

PATIENT
  Sex: Female
  Weight: 52 kg

DRUGS (2)
  1. NAPROXEN [Concomitant]
     Indication: BACK PAIN
  2. REBIF [Suspect]
     Indication: PRODUCT USED FOR UNKNOWN INDICATION
     Route: 058
     Dates: start: 20040229

REACTIONS (7)
  - BACK PAIN [None]
  - PHOTOPSIA [None]
  - BLINDNESS [None]
  - WEIGHT DECREASED [None]
  - FALL [None]
  - ABDOMINAL PAIN LOWER [None]
  - INFLUENZA LIKE ILLNESS [None]
